FAERS Safety Report 7997341-8 (Version None)
Quarter: 2011Q4

REPORT INFORMATION
  Report Type: 
  Country: None (occurrence: None)
  Receive Date: 20111212
  Receipt Date: 20111205
  Transmission Date: 20120403
  Serious: Yes (Hospitalization, Other)
  Sender: FDA-Public Use
  Company Number: 2011028871

PATIENT
  Age: 53 Year
  Sex: Female
  Weight: 83.4619 kg

DRUGS (35)
  1. ESTRING [Concomitant]
  2. FLORINEF [Concomitant]
  3. BACTROBAN [Concomitant]
  4. HIZENTRA [Suspect]
     Indication: IMMUNODEFICIENCY COMMON VARIABLE
     Dosage: (9 G 1X/WEEK, 9 G (45 ML) IN 2-4 SITES OVER 1 HOUR SUBCUTANEOUS
     Route: 058
     Dates: start: 20101218
  5. HIZENTRA [Suspect]
     Indication: IMMUNODEFICIENCY COMMON VARIABLE
     Dosage: (4 GM 20 ML VIAL SUBCUTANEOUS)
     Route: 058
     Dates: start: 20101218
  6. LORATADINE [Concomitant]
  7. RESTASIS [Concomitant]
  8. OXYGEN (OXYGEN) [Concomitant]
  9. HIZENTRA [Suspect]
     Indication: IMMUNODEFICIENCY COMMON VARIABLE
     Dosage: (1 GM 5 ML VIAL SUBCUTANEOUS)
     Route: 058
     Dates: start: 20101218
  10. OXYCONTIN [Concomitant]
  11. ZOFRAN [Concomitant]
  12. CLONAZEPAM [Concomitant]
  13. VIVELLE-DOT [Concomitant]
  14. TYLENOL ARTHRITIS (PARACETAMOL) [Concomitant]
  15. HIZENTRA [Suspect]
     Indication: IMMUNODEFICIENCY COMMON VARIABLE
     Dosage: SUBCUTANEOUS
     Route: 058
  16. HIZENTRA [Suspect]
     Indication: IMMUNODEFICIENCY COMMON VARIABLE
     Dates: start: 20110903, end: 20110903
  17. HIZENTRA [Suspect]
     Indication: IMMUNODEFICIENCY COMMON VARIABLE
     Dosage: (1 GM 5 ML VIAL SUBCUTANEOUS)
     Route: 058
  18. HIZENTRA [Suspect]
     Indication: IMMUNODEFICIENCY COMMON VARIABLE
     Dosage: (1 GM 5 ML VIAL; 4 SITES OVER 1 HOUR AND 28 MINUTES SUBCUTANEOUS)
     Route: 058
  19. HIZENTRA [Suspect]
     Indication: IMMUNODEFICIENCY COMMON VARIABLE
     Dosage: (4 GM 20 ML VIAL; 4 SITES OVER 1 HOUR AND 28 MINUTES SUBCUTANEOUS)
     Route: 058
  20. SYNTHROID [Concomitant]
  21. LIDODERM [Concomitant]
  22. HIZENTRA [Suspect]
     Indication: IMMUNODEFICIENCY COMMON VARIABLE
     Dosage: (1 GM 5 ML VIAL; 2-4 SITES IN 1 HOUR SUBCUTANEOUS)
     Route: 058
     Dates: start: 20101001
  23. HIZENTRA [Suspect]
     Indication: IMMUNODEFICIENCY COMMON VARIABLE
     Dosage: (4 GM 20 ML VIAL SUBCUTANEOUS)
     Route: 058
     Dates: start: 20101001
  24. HIZENTRA [Suspect]
     Indication: IMMUNODEFICIENCY COMMON VARIABLE
     Dosage: (1 GM 5 ML VIAL; 45 ML IN 4 SITES WITH 600 ML/HR OVER 2 HOURS SUBCUTANEOUS)
     Route: 058
     Dates: start: 20101208
  25. LOTEMAX [Concomitant]
  26. PROBIOTIC (LACTOBACILLUS ACIDOPHILUS) [Concomitant]
  27. VITAMIN D [Concomitant]
  28. HIZENTRA [Suspect]
     Indication: IMMUNODEFICIENCY COMMON VARIABLE
     Dates: start: 20110903, end: 20110903
  29. VICODIN [Concomitant]
  30. LEXAPRO [Concomitant]
  31. TYLENOL W/ CODEINE NO. 3 [Concomitant]
  32. HIZENTRA [Suspect]
     Indication: IMMUNODEFICIENCY COMMON VARIABLE
     Dosage: (4 GM 20 ML VIAL; 45 ML IN 4 SITES WITH 600 ML/HR OVER 2 HOURS SUBCUTANEOUS)
     Route: 058
     Dates: start: 20101208
  33. HIZENTRA [Suspect]
     Indication: IMMUNODEFICIENCY COMMON VARIABLE
     Dosage: (1 GM 5 ML VIAL IN 2-4 SIOTS OVER 2.5 HOURS SUBCUTANEOUS)
     Route: 058
     Dates: start: 20111026
  34. HIZENTRA [Suspect]
     Indication: IMMUNODEFICIENCY COMMON VARIABLE
     Dosage: (4 GM 20 ML VIAL IN 2-4 SITES OVER 2.5 HOURS SUBCUTANEOUS)
     Route: 058
     Dates: start: 20111026
  35. PREDNISONE TAB [Concomitant]

REACTIONS (23)
  - CHILLS [None]
  - IMPAIRED HEALING [None]
  - POSTOPERATIVE WOUND COMPLICATION [None]
  - HERPES SIMPLEX [None]
  - PAIN [None]
  - INFLUENZA LIKE ILLNESS [None]
  - SINUSITIS [None]
  - VOMITING [None]
  - HYPERHIDROSIS [None]
  - EAR INFECTION FUNGAL [None]
  - HEADACHE [None]
  - OROPHARYNGEAL PAIN [None]
  - CANDIDIASIS [None]
  - SINUS CONGESTION [None]
  - RESPIRATORY TRACT INFECTION [None]
  - NAUSEA [None]
  - OTITIS MEDIA [None]
  - DIZZINESS [None]
  - INTERSTITIAL LUNG DISEASE [None]
  - SINUS HEADACHE [None]
  - SKIN LESION [None]
  - ORAL INFECTION [None]
  - OTITIS EXTERNA [None]
